FAERS Safety Report 7118754-2 (Version None)
Quarter: 2010Q4

REPORT INFORMATION
  Report Type: 
  Country: None (occurrence: None)
  Receive Date: 20101123
  Receipt Date: 20101117
  Transmission Date: 20110411
  Serious: Yes (Life-Threatening, Other)
  Sender: FDA-Public Use
  Company Number: US-ROXANE LABORATORIES, INC.-2010-RO-01511RO

PATIENT
  Age: 41 Year
  Sex: Female

DRUGS (4)
  1. OXCARBAZEPINE [Suspect]
     Route: 048
  2. VENLAFAXINE [Suspect]
  3. CETIRIZINE [Suspect]
  4. MOUTHWASH [Suspect]
     Route: 048

REACTIONS (3)
  - ATRIOVENTRICULAR DISSOCIATION [None]
  - INTENTIONAL OVERDOSE [None]
  - NODAL RHYTHM [None]
